FAERS Safety Report 14963398 (Version 1)
Quarter: 2018Q2

REPORT INFORMATION
  Report Type: Spontaneous
  Country: US (occurrence: US)
  Receive Date: 20180601
  Receipt Date: 20180601
  Transmission Date: 20180711
  Serious: No
  Sender: FDA-Public Use
  Company Number: US-ABBVIE-18P-163-2209346-00

PATIENT
  Sex: Female

DRUGS (2)
  1. DRONABINOL. [Suspect]
     Active Substance: DRONABINOL
     Indication: OESOPHAGEAL DISORDER
     Route: 048
     Dates: start: 201709, end: 201712
  2. DRONABINOL. [Suspect]
     Active Substance: DRONABINOL
     Route: 048
     Dates: start: 201712

REACTIONS (2)
  - Nausea [Recovered/Resolved]
  - Off label use [Recovered/Resolved]
